FAERS Safety Report 7304079-9 (Version None)
Quarter: 2011Q1

REPORT INFORMATION
  Report Type: 
  Country: None (occurrence: None)
  Receive Date: 20110221
  Receipt Date: 20110210
  Transmission Date: 20110831
  Serious: Yes (Hospitalization)
  Sender: FDA-Public Use
  Company Number: PHHY2010CA47984

PATIENT
  Sex: Female

DRUGS (5)
  1. OXYCONTIN [Concomitant]
  2. FOLIC ACID [Concomitant]
  3. EXJADE [Suspect]
     Indication: MYELODYSPLASTIC SYNDROME
     Dosage: 1500 MG, QD
     Route: 048
  4. MELOXICAM [Concomitant]
  5. TYLENOL [Concomitant]

REACTIONS (10)
  - BACK PAIN [None]
  - BACTERIAL INFECTION [None]
  - DIARRHOEA [None]
  - ACNE [None]
  - INFLUENZA [None]
  - DRY MOUTH [None]
  - PRURITUS [None]
  - HEADACHE [None]
  - PNEUMONIA [None]
  - FATIGUE [None]
